FAERS Safety Report 10094703 (Version 1)
Quarter: 2014Q2

REPORT INFORMATION
  Report Type: Spontaneous
  Country: US (occurrence: US)
  Receive Date: 20140422
  Receipt Date: 20140422
  Transmission Date: 20141212
  Serious: No
  Sender: FDA-Public Use
  Company Number: US-009507513-1404USA004818

PATIENT
  Sex: Female

DRUGS (1)
  1. PROVENTIL [Suspect]
     Indication: ASTHMA
     Dosage: 1-2 PUFFS AS NEED (1 STANTARD DOSE OF 6.7)
     Route: 055

REACTIONS (3)
  - Wheezing [Unknown]
  - Underdose [Unknown]
  - Product quality issue [Unknown]
